FAERS Safety Report 7141142-X (Version None)
Quarter: 2010Q4

REPORT INFORMATION
  Report Type: 
  Country: None (occurrence: None)
  Receive Date: 20101207
  Receipt Date: 20101201
  Transmission Date: 20110411
  Serious: Yes (Life-Threatening)
  Sender: FDA-Public Use
  Company Number: JP-SHIRE-SPV1-2010-02111

PATIENT
  Age: 59 Year
  Sex: Female

DRUGS (1)
  1. FOSRENOL [Suspect]
     Indication: HYPERPHOSPHATAEMIA
     Dosage: 500 MG, OTHER, TOTAL DAILY DOSE
     Route: 048
     Dates: start: 20100930

REACTIONS (3)
  - ABDOMINAL ABSCESS [None]
  - DIVERTICULAR PERFORATION [None]
  - PERITONITIS [None]
